FAERS Safety Report 17505505 (Version 1)
Quarter: 2020Q1

REPORT INFORMATION
  Report Type: Spontaneous
  Country: US (occurrence: US)
  Receive Date: 20200225
  Receipt Date: 20200225
  Transmission Date: 20200409
  Serious: Yes (Hospitalization)
  Sender: FDA-Public Use
  Company Number: None

PATIENT
  Age: 62 Year
  Sex: Male
  Weight: 80.74 kg

DRUGS (1)
  1. CETUXIMAB (CETUXIMAB 2MG/ML INJ, 100ML) [Suspect]
     Active Substance: CETUXIMAB
     Indication: TONSIL CANCER
     Route: 042
     Dates: start: 20190730

REACTIONS (9)
  - Chills [None]
  - Tachycardia [None]
  - Wheezing [None]
  - Pyrexia [None]
  - Chest pain [None]
  - Tremor [None]
  - Confusional state [None]
  - Mental status changes [None]
  - Cough [None]

NARRATIVE: CASE EVENT DATE: 20190821
